FAERS Safety Report 7241051-1 (Version None)
Quarter: 2011Q1

REPORT INFORMATION
  Report Type: 
  Country: None (occurrence: None)
  Receive Date: 20110120
  Receipt Date: 20110120
  Transmission Date: 20110831
  Serious: Yes (Other)
  Sender: FDA-Public Use
  Company Number: None

PATIENT
  Sex: Female
  Weight: 51.2565 kg

DRUGS (2)
  1. FLUOROURACIL [Suspect]
     Indication: SKIN CANCER
     Dosage: CHEST AREA SMALL AMOUNT 2X DAY
     Dates: start: 20101218
  2. FLUOROURACIL [Suspect]
     Indication: SKIN CANCER
     Dosage: CHEST AREA SMALL AMOUNT 2X DAY
     Dates: start: 20101213

REACTIONS (6)
  - ARTHRALGIA [None]
  - PYREXIA [None]
  - COLITIS [None]
  - CHILLS [None]
  - PAIN [None]
  - MALAISE [None]
